FAERS Safety Report 19100894 (Version 2)
Quarter: 2021Q2

REPORT INFORMATION
  Report Type: Spontaneous
  Country: US (occurrence: US)
  Receive Date: 20210407
  Receipt Date: 20210420
  Transmission Date: 20210717
  Serious: Yes (Life-Threatening, Hospitalization, Other)
  Sender: FDA-Public Use
  Company Number: US-ACCORD-222084

PATIENT
  Age: 64 Year
  Sex: Female

DRUGS (9)
  1. CLONAZEPAM. [Interacting]
     Active Substance: CLONAZEPAM
     Indication: SEIZURE
     Dosage: 0.5 MG DAILY
  2. AMITRIPTYLINE [Suspect]
     Active Substance: AMITRIPTYLINE
     Indication: DEPRESSION
  3. CYCLOBENZAPRINE. [Interacting]
     Active Substance: CYCLOBENZAPRINE
     Indication: PRODUCT USED FOR UNKNOWN INDICATION
     Dosage: 10 MG DAILY
  4. SITAGLIPTIN/SITAGLIPTIN PHOSPHATE [Interacting]
     Active Substance: SITAGLIPTIN PHOSPHATE
     Indication: PRODUCT USED FOR UNKNOWN INDICATION
     Dosage: 25 MG DAILY
  5. ERENUMAB [Interacting]
     Active Substance: ERENUMAB
     Indication: PRODUCT USED FOR UNKNOWN INDICATION
     Dosage: 70 MG?INJECTED MONTHLY
  6. BENZATROPINE [Interacting]
     Active Substance: BENZTROPINE
     Indication: PRODUCT USED FOR UNKNOWN INDICATION
     Dosage: 1 MG THREE?TIMES A DAY
  7. TRAZODONE [Interacting]
     Active Substance: TRAZODONE HYDROCHLORIDE
     Indication: DEPRESSION
     Dosage: 100 MG?DAILY
  8. TOPIRAMATE. [Interacting]
     Active Substance: TOPIRAMATE
     Indication: SEIZURE
     Dosage: EXTENDED RELEASE 100 MG DAILY
  9. LURASIDONE [Interacting]
     Active Substance: LURASIDONE
     Indication: BIPOLAR DISORDER
     Dosage: 80 MG DAILY

REACTIONS (6)
  - Mental status changes [Recovered/Resolved]
  - Drug interaction [Unknown]
  - Leukocytosis [Recovered/Resolved]
  - Hyperthermia [Recovered/Resolved]
  - Staphylococcal bacteraemia [Recovered/Resolved]
  - Hypotension [Recovered/Resolved]
